FAERS Safety Report 9163462 (Version 2)
Quarter: 2013Q2

REPORT INFORMATION
  Report Type: Spontaneous
  Country: US (occurrence: None)
  Receive Date: 20130226
  Receipt Date: 20130422
  Transmission Date: 20140414
  Serious: Yes (Other)
  Sender: FDA-Public Use
  Company Number: 2013P1001325

PATIENT
  Age: 66 Year
  Sex: Male
  Weight: 99.79 kg

DRUGS (19)
  1. COLLAGENASE SANTYL [Suspect]
     Indication: WOUND
     Route: 061
     Dates: start: 201301, end: 201301
  2. VITAMINS [Concomitant]
  3. ASPIRIN EC [Concomitant]
  4. SYNTHROID [Concomitant]
  5. SYNTHROID [Concomitant]
  6. BACTROBAN OINTMENT [Concomitant]
  7. ALTACE [Concomitant]
  8. AMANTADINE [Concomitant]
  9. METOPROLOL TARTRATE [Concomitant]
  10. NUTROPIN [Concomitant]
  11. PRILOSEC DELAYED-RELEASE CAPSULES [Concomitant]
  12. PROSCAR [Concomitant]
  13. SIMVASTATIN [Concomitant]
  14. SINGULAIR [Concomitant]
  15. ZETIA [Concomitant]
  16. LIDOCAINE [Suspect]
  17. EPINEPHRINE [Suspect]
  18. TETRACAINE [Suspect]
  19. SODIUM METABISULFITE [Suspect]

REACTIONS (8)
  - Application site irritation [None]
  - Skin tightness [None]
  - Insomnia [None]
  - Gait disturbance [None]
  - Application site oedema [None]
  - Arterial haemorrhage [None]
  - Application site reaction [None]
  - Angiopathy [None]
